FAERS Safety Report 20382156 (Version 1)
Quarter: 2022Q1

REPORT INFORMATION
  Report Type: Report from Study
  Country: CO (occurrence: CO)
  Receive Date: 20220127
  Receipt Date: 20220127
  Transmission Date: 20220423
  Serious: Yes (Other)
  Sender: FDA-Public Use
  Company Number: CO-NOVARTISPH-NVSC2021CO172314

PATIENT
  Sex: Female
  Weight: 57 kg

DRUGS (3)
  1. AFINITOR [Suspect]
     Active Substance: EVEROLIMUS
     Indication: Gastroenteropancreatic neuroendocrine tumour disease
     Dosage: 10 MG, QD
     Route: 048
     Dates: start: 202103
  2. AFINITOR [Suspect]
     Active Substance: EVEROLIMUS
     Indication: Neuroendocrine tumour of the lung
  3. METOPROLOL [Concomitant]
     Active Substance: METOPROLOL
     Indication: Arrhythmia
     Dosage: 50 MG, QD
     Route: 048

REACTIONS (14)
  - Neuropathy peripheral [Unknown]
  - Nervousness [Unknown]
  - Oral mucosal exfoliation [Unknown]
  - Oral discomfort [Unknown]
  - Gingival pain [Unknown]
  - Fear [Unknown]
  - Emotional distress [Unknown]
  - Toxicity to various agents [Unknown]
  - Rash pruritic [Recovered/Resolved]
  - Peripheral swelling [Unknown]
  - Oral pain [Recovered/Resolved]
  - Erythema [Unknown]
  - Malaise [Unknown]
  - Swelling [Unknown]
